FAERS Safety Report 8237371-4 (Version None)
Quarter: 2012Q1

REPORT INFORMATION
  Report Type: 
  Country: None (occurrence: None)
  Receive Date: 20120327
  Receipt Date: 20120321
  Transmission Date: 20120608
  Serious: Yes (Other)
  Sender: FDA-Public Use
  Company Number: US-PFIZER INC-2012074200

PATIENT
  Sex: Female
  Weight: 73.923 kg

DRUGS (10)
  1. MULTI-VITAMINS [Concomitant]
     Indication: FLATULENCE
     Dosage: UNK
  2. SERTRALINE HYDROCHLORIDE [Suspect]
     Indication: DEPRESSION
     Dosage: UNK
  3. XANAX [Concomitant]
     Indication: ANXIETY
     Dosage: 0.5 MG, 3X/DAY
  4. VITAMIN D [Concomitant]
     Dosage: UNK
  5. EDECRIN [Concomitant]
     Indication: DIURETIC THERAPY
     Dosage: UNK
  6. DIOVAN [Concomitant]
     Indication: BLOOD PRESSURE ABNORMAL
     Dosage: UNK
  7. SULFUR [Suspect]
     Dosage: UNK
  8. ATENOLOL [Concomitant]
     Indication: BLOOD PRESSURE ABNORMAL
     Dosage: UNK
  9. CALCIUM CARBONATE [Concomitant]
     Indication: ABDOMINAL DISCOMFORT
     Dosage: UNK
  10. FISH OIL [Concomitant]
     Dosage: UNK

REACTIONS (4)
  - ARTHRITIS [None]
  - DRUG HYPERSENSITIVITY [None]
  - WEIGHT INCREASED [None]
  - DRUG INTOLERANCE [None]
